FAERS Safety Report 9322702 (Version 2)
Quarter: 2013Q3

REPORT INFORMATION
  Report Type: Spontaneous
  Country: US (occurrence: US)
  Receive Date: 20130601
  Receipt Date: 20130809
  Transmission Date: 20140515
  Serious: Yes (Hospitalization, Other)
  Sender: FDA-Public Use
  Company Number: US-ASTRAZENECA-2013SE38618

PATIENT
  Age: 50 Year
  Sex: Male
  Weight: 104.3 kg

DRUGS (24)
  1. NEXIUM [Suspect]
     Indication: GASTROOESOPHAGEAL REFLUX DISEASE
     Route: 048
     Dates: start: 2004
  2. NEXIUM [Suspect]
     Indication: GASTRIC DISORDER
     Route: 048
     Dates: start: 2004
  3. NEXIUM [Suspect]
     Indication: GASTROOESOPHAGEAL REFLUX DISEASE
     Route: 048
  4. NEXIUM [Suspect]
     Indication: GASTRIC DISORDER
     Route: 048
  5. NEXIUM [Suspect]
     Indication: GASTROOESOPHAGEAL REFLUX DISEASE
     Route: 048
  6. NEXIUM [Suspect]
     Indication: GASTRIC DISORDER
     Route: 048
  7. NEXIUM [Suspect]
     Indication: GASTROOESOPHAGEAL REFLUX DISEASE
     Route: 048
  8. NEXIUM [Suspect]
     Indication: GASTRIC DISORDER
     Route: 048
  9. NEXIUM [Suspect]
     Indication: GASTROOESOPHAGEAL REFLUX DISEASE
     Route: 048
     Dates: start: 20040911
  10. NEXIUM [Suspect]
     Indication: GASTRIC DISORDER
     Route: 048
     Dates: start: 20040911
  11. HYDROCHLOROTHIAZIDE [Concomitant]
  12. LISINOPRIL [Concomitant]
  13. LIPITOR [Concomitant]
  14. SEROQUEL [Concomitant]
  15. COREG 3 [Concomitant]
  16. NEURONTIN [Concomitant]
     Dates: start: 20040907
  17. IBUPROFEN [Concomitant]
     Dates: start: 20040907
  18. VITAPLEX PLUS [Concomitant]
     Dates: start: 20040910
  19. NIASPAN [Concomitant]
     Dates: start: 20040913
  20. TRAZODONE [Concomitant]
     Dates: start: 20040913
  21. PROVIGIL [Concomitant]
     Dates: start: 20040914
  22. SINGULAIR [Concomitant]
     Dates: start: 20040915
  23. ADVAIR [Concomitant]
     Dosage: 250-50
     Dates: start: 20040915
  24. CLONAZEPAM [Concomitant]
     Dates: start: 20040917

REACTIONS (20)
  - Cardiomyopathy [Unknown]
  - Arthropathy [Unknown]
  - Colitis ischaemic [Unknown]
  - Pneumonia [Unknown]
  - Back disorder [Unknown]
  - Osteoporosis [Unknown]
  - Bone disorder [Unknown]
  - Multiple fractures [Unknown]
  - Osteoarthritis [Unknown]
  - Upper limb fracture [Unknown]
  - Chronic obstructive pulmonary disease [Unknown]
  - Ankylosing spondylitis [Unknown]
  - Arthritis [Unknown]
  - Atrophy [Unknown]
  - Scoliosis [Unknown]
  - Bipolar disorder [Unknown]
  - Rheumatoid arthritis [Unknown]
  - Abdominal pain upper [Unknown]
  - Dizziness [Unknown]
  - Insomnia [Unknown]
